FAERS Safety Report 18442659 (Version 1)
Quarter: 2020Q4

REPORT INFORMATION
  Report Type: Spontaneous
  Country: US (occurrence: US)
  Receive Date: 20201029
  Receipt Date: 20201029
  Transmission Date: 20210114
  Serious: No
  Sender: FDA-Public Use
  Company Number: US-SLATE RUN PHARMACEUTICALS-20US000307

PATIENT

DRUGS (2)
  1. VORICONAZOLE. [Suspect]
     Active Substance: VORICONAZOLE
     Indication: SCEDOSPORIUM INFECTION
     Dosage: UNK
     Route: 065
  2. VORICONAZOLE. [Suspect]
     Active Substance: VORICONAZOLE
     Indication: ARTHRITIS BACTERIAL
     Dosage: UNK (DOSE REDUCTION)
     Route: 065

REACTIONS (3)
  - Muscle oedema [Recovering/Resolving]
  - Myalgia [Recovering/Resolving]
  - Periostitis [Recovering/Resolving]
